FAERS Safety Report 7293297-4 (Version None)
Quarter: 2011Q1

REPORT INFORMATION
  Report Type: 
  Country: None (occurrence: None)
  Receive Date: 20110215
  Receipt Date: 20110201
  Transmission Date: 20110831
  Serious: Yes (Other)
  Sender: FDA-Public Use
  Company Number: JP-WATSON-2011-01830

PATIENT
  Age: 44 Year
  Sex: Female

DRUGS (1)
  1. DEXAMETHASONE [Suspect]
     Indication: PRODUCT USED FOR UNKNOWN INDICATION
     Dosage: 6 MG, DAILY
     Route: 048

REACTIONS (4)
  - PHAEOCHROMOCYTOMA [None]
  - MYOCARDIAL INFARCTION [None]
  - HYPERTENSION [None]
  - HAEMORRHAGE [None]
